FAERS Safety Report 20143528 (Version 1)
Quarter: 2021Q4

REPORT INFORMATION
  Report Type: Spontaneous
  Country: FR (occurrence: FR)
  Receive Date: 20211203
  Receipt Date: 20211203
  Transmission Date: 20220303
  Serious: Yes (Death, Hospitalization)
  Sender: FDA-Public Use
  Company Number: FR-AFSSAPS-BX202110292

PATIENT
  Age: 85 Year
  Sex: Female
  Weight: 49 kg

DRUGS (8)
  1. ACETAMINOPHEN [Suspect]
     Active Substance: ACETAMINOPHEN
     Indication: Product used for unknown indication
     Dosage: 1 GRAM, DAILY
     Route: 048
     Dates: start: 20210908, end: 20211002
  2. PIPERACILLIN SODIUM [Suspect]
     Active Substance: PIPERACILLIN SODIUM
     Indication: Infection
     Dosage: 4 GRAM, TID
     Route: 042
     Dates: start: 20210915, end: 20210924
  3. CALCIUM CARBONATE\CHOLECALCIFEROL [Suspect]
     Active Substance: CALCIUM CARBONATE\CHOLECALCIFEROL
     Indication: Hypovitaminosis
     Dosage: 2 DOSAGE FORM, DAILY
     Route: 048
     Dates: start: 20210916, end: 20211005
  4. ENOXAPARIN SODIUM [Suspect]
     Active Substance: ENOXAPARIN SODIUM
     Indication: Thrombosis prophylaxis
     Dosage: 4000 INTERNATIONAL UNIT, DAILY
     Route: 058
     Dates: start: 20210916, end: 20210921
  5. NOVORAPID [Suspect]
     Active Substance: INSULIN ASPART
     Indication: Hypovitaminosis
     Dosage: 2 INTERNATIONAL UNIT, CYCLICAL
     Route: 058
     Dates: start: 20210914, end: 20211005
  6. TAZOBACTAM [Suspect]
     Active Substance: TAZOBACTAM
     Indication: Infection
     Dosage: 4 GRAM, TID
     Route: 042
     Dates: start: 20210915, end: 20210924
  7. POLYETHYLENE GLYCOL 3350 [Suspect]
     Active Substance: POLYETHYLENE GLYCOL 3350
     Indication: Constipation
     Dosage: 1 DOSAGE FORM, DAILY
     Route: 048
     Dates: start: 20211003, end: 20211013
  8. REVLIMID [Suspect]
     Active Substance: LENALIDOMIDE
     Indication: Follicular lymphoma
     Dosage: 15 MILLIGRAM, DAILY
     Route: 048
     Dates: start: 20210930, end: 20211020

REACTIONS (1)
  - Toxic epidermal necrolysis [Fatal]

NARRATIVE: CASE EVENT DATE: 20211013
